FAERS Safety Report 8021000-9 (Version None)
Quarter: 2011Q4

REPORT INFORMATION
  Report Type: 
  Country: None (occurrence: None)
  Receive Date: 20111229
  Receipt Date: 20111229
  Transmission Date: 20120403
  Serious: Yes (Hospitalization)
  Sender: FDA-Public Use
  Company Number: None

PATIENT
  Age: 71 Year
  Sex: Female
  Weight: 56.8 kg

DRUGS (13)
  1. TRUSOPT [Concomitant]
  2. FIORICET [Concomitant]
  3. HYDROCHLOROTHIAZIDE [Concomitant]
  4. LUMIGAN [Concomitant]
  5. ENALAPRIL MALEATE [Concomitant]
  6. POTASSIUM CHLORIDE [Concomitant]
  7. TENORMIN [Concomitant]
  8. CLORAZEPATE DIPOTASSIUM [Concomitant]
  9. COUMADIN [Suspect]
     Indication: PULMONARY EMBOLISM
     Dosage: 5MG QHS PO CHRONIC
     Route: 048
  10. COUMADIN [Suspect]
     Indication: DEEP VEIN THROMBOSIS
     Dosage: 5MG QHS PO CHRONIC
     Route: 048
  11. PREVACID [Concomitant]
  12. BONIVA [Concomitant]
  13. DIOVAN [Concomitant]

REACTIONS (4)
  - COAGULOPATHY [None]
  - HEAD INJURY [None]
  - FALL [None]
  - INTERNATIONAL NORMALISED RATIO INCREASED [None]
